FAERS Safety Report 9820131 (Version 2)
Quarter: 2014Q1

REPORT INFORMATION
  Report Type: Spontaneous
  Country: US (occurrence: US)
  Receive Date: 20140116
  Receipt Date: 20140116
  Transmission Date: 20141002
  Serious: Yes (Other)
  Sender: FDA-Public Use
  Company Number: US-GE HEALTHCARE MEDICAL DIAGNOSTICS-OSCN-PR-1010S-0273

PATIENT
  Age: 45 Year
  Sex: Male

DRUGS (8)
  1. OMNISCAN [Suspect]
     Indication: BRAIN ABSCESS
     Dates: start: 19990920, end: 19990920
  2. OMNISCAN [Suspect]
     Indication: BRAIN ABSCESS
     Dates: start: 19990927, end: 19990927
  3. OMNISCAN [Suspect]
     Indication: BRAIN ABSCESS
     Dates: start: 19991008, end: 19991008
  4. OMNISCAN [Suspect]
     Indication: BRAIN ABSCESS
     Dates: start: 19991013, end: 19991013
  5. OMNISCAN [Suspect]
     Indication: BRAIN ABSCESS
     Dates: start: 19991028, end: 19991028
  6. GADOLINIUM (UNSPECIFIED) [Suspect]
     Indication: SPINAL COMPRESSION FRACTURE
     Dates: start: 200601, end: 200601
  7. GADOLINIUM (UNSPECIFIED) [Suspect]
     Indication: SPINAL PAIN
     Dates: start: 20080813, end: 20080813
  8. GADOLINIUM (UNSPECIFIED) [Suspect]
     Indication: SPINAL PAIN

REACTIONS (1)
  - Nephrogenic systemic fibrosis [Not Recovered/Not Resolved]
